FAERS Safety Report 20176781 (Version 1)
Quarter: 2021Q4

REPORT INFORMATION
  Report Type: Spontaneous
  Country: US (occurrence: None)
  Receive Date: 20211209
  Receipt Date: 20211209
  Transmission Date: 20220303
  Serious: No
  Sender: FDA-Public Use
  Company Number: None

PATIENT
  Age: 75 Year
  Sex: Female

DRUGS (1)
  1. IVERMECTIN [Suspect]
     Active Substance: IVERMECTIN

REACTIONS (8)
  - Diarrhoea [None]
  - Electrolyte imbalance [None]
  - Adverse event [None]
  - Blood creatinine increased [None]
  - Renal failure [None]
  - Self-medication [None]
  - Product use in unapproved indication [None]
  - Diarrhoea [None]
